FAERS Safety Report 13029907 (Version 1)
Quarter: 2016Q4

REPORT INFORMATION
  Report Type: Spontaneous
  Country: US (occurrence: US)
  Receive Date: 20161214
  Receipt Date: 20161214
  Transmission Date: 20170207
  Serious: Yes (Hospitalization)
  Sender: FDA-Public Use
  Company Number: None

PATIENT
  Age: 73 Year
  Sex: Male
  Weight: 108.9 kg

DRUGS (2)
  1. VANCOMYCIN [Suspect]
     Active Substance: VANCOMYCIN
     Indication: DEVICE RELATED INFECTION
     Dates: start: 20141006, end: 20161105
  2. VANCOMYCIN [Suspect]
     Active Substance: VANCOMYCIN
     Indication: JOINT PROSTHESIS USER
     Dates: start: 20141006, end: 20161105

REACTIONS (3)
  - Drug level increased [None]
  - Tubulointerstitial nephritis [None]
  - Nephrogenic systemic fibrosis [None]

NARRATIVE: CASE EVENT DATE: 20161105
